FAERS Safety Report 17429403 (Version 1)
Quarter: 2020Q1

REPORT INFORMATION
  Report Type: Spontaneous
  Country: US (occurrence: US)
  Receive Date: 20200218
  Receipt Date: 20200218
  Transmission Date: 20200409
  Serious: No
  Sender: FDA-Public Use
  Company Number: US-PERRIGO-19US009381

PATIENT
  Sex: Female

DRUGS (4)
  1. TRETINOIN 0.05% CREAM (2L4) [Suspect]
     Active Substance: TRETINOIN
     Dosage: SMALL AMOUNT, QD
     Route: 061
  2. TRETINOIN 0.05% CREAM (2L4) [Suspect]
     Active Substance: TRETINOIN
     Dosage: SMALL AMOUNT, TWICE
     Route: 061
     Dates: start: 2019, end: 2019
  3. TRETINOIN 0.05% CREAM (2L4) [Suspect]
     Active Substance: TRETINOIN
     Indication: SKIN WRINKLING
     Dosage: SMALL AMOUNT, QOD
     Route: 061
  4. TRETINOIN 0.05% CREAM (2L4) [Suspect]
     Active Substance: TRETINOIN
     Dosage: SMALL AMOUNT, PRN
     Route: 061
     Dates: end: 2017

REACTIONS (3)
  - Application site erythema [Recovered/Resolved]
  - Paraesthesia [Recovered/Resolved]
  - Drug ineffective for unapproved indication [Unknown]
